FAERS Safety Report 6856883-9 (Version None)
Quarter: 2010Q3

REPORT INFORMATION
  Report Type: 
  Country: None (occurrence: None)
  Receive Date: 20100719
  Receipt Date: 20100216
  Transmission Date: 20110219
  Serious: No
  Sender: FDA-Public Use
  Company Number: US-BRISTOL-MYERS SQUIBB COMPANY-14993067

PATIENT
  Age: 48 Year
  Sex: Female

DRUGS (6)
  1. ESTRACE [Suspect]
     Route: 048
  2. FEMRING [Suspect]
     Indication: VULVOVAGINAL DRYNESS
     Dosage: FEMRING VAGINAL RING
     Route: 067
     Dates: start: 20031103, end: 20100208
  3. FEMRING [Suspect]
     Indication: OESTROGEN REPLACEMENT THERAPY
     Dosage: FEMRING VAGINAL RING
     Route: 067
     Dates: start: 20031103, end: 20100208
  4. ESTRADIOL [Concomitant]
  5. BUSPAR [Concomitant]
  6. MULTI-VITAMIN [Concomitant]

REACTIONS (5)
  - DRUG INEFFECTIVE [None]
  - FUNGAL INFECTION [None]
  - OEDEMA PERIPHERAL [None]
  - VAGINAL SWELLING [None]
  - VULVOVAGINAL DISCOMFORT [None]
